FAERS Safety Report 11667787 (Version 2)
Quarter: 2015Q4

REPORT INFORMATION
  Report Type: Spontaneous
  Country: JP (occurrence: JP)
  Receive Date: 20151027
  Receipt Date: 20151120
  Transmission Date: 20160304
  Serious: Yes (Other)
  Sender: FDA-Public Use
  Company Number: JP-ASTRAZENECA-2015SF03198

PATIENT
  Age: 63 Year
  Sex: Male

DRUGS (5)
  1. DEXART [Concomitant]
     Active Substance: DEXAMETHASONE SODIUM PHOSPHATE
     Dates: start: 20130722
  2. 5-FU [Suspect]
     Active Substance: FLUOROURACIL
     Dosage: 160MG/BODY
     Route: 065
     Dates: start: 20130701
  3. PLATOSIN [Suspect]
     Active Substance: CISPLATIN
     Dosage: 120MG/BODY (DAY1).
     Route: 065
     Dates: start: 20130701
  4. MEROPEN [Suspect]
     Active Substance: MEROPENEM
     Indication: FEBRILE NEUTROPENIA
     Route: 042
     Dates: start: 20130717, end: 20130720
  5. GRAN [Concomitant]
     Active Substance: FILGRASTIM
     Dosage: NI SC NEUTROPHIL COUNT DECREASED

REACTIONS (2)
  - Stevens-Johnson syndrome [Unknown]
  - Drug eruption [Recovered/Resolved]

NARRATIVE: CASE EVENT DATE: 20130822
